FAERS Safety Report 6392068-0 (Version None)
Quarter: 2009Q4

REPORT INFORMATION
  Report Type: 
  Country: None (occurrence: None)
  Receive Date: 20091007
  Receipt Date: 20090926
  Transmission Date: 20100525
  Serious: Yes (Other)
  Sender: FDA-Public Use
  Company Number: DE-JNJFOC-20090908217

PATIENT
  Age: 55 Year
  Sex: Female

DRUGS (5)
  1. REMICADE [Suspect]
     Route: 042
  2. REMICADE [Suspect]
     Indication: PSORIASIS
     Route: 042
  3. OMEPRAZOLE [Concomitant]
  4. SIMVASTATIN [Concomitant]
  5. RAMIPRIL [Concomitant]

REACTIONS (5)
  - BURNING SENSATION [None]
  - CARDIOVASCULAR DISORDER [None]
  - CHILLS [None]
  - INFUSION RELATED REACTION [None]
  - MALAISE [None]
